FAERS Safety Report 9013278 (Version 1)
Quarter: 2013Q1

REPORT INFORMATION
  Report Type: Spontaneous
  Country: US (occurrence: None)
  Receive Date: 20130107
  Receipt Date: 20130107
  Transmission Date: 20140127
  Serious: Yes (Disabling)
  Sender: FDA-Public Use
  Company Number: None

PATIENT
  Age: 46 Year
  Sex: Female
  Weight: 65.77 kg

DRUGS (1)
  1. NASONEX [Suspect]
     Indication: ACUTE SINUSITIS
     Dosage: TWO SPRAYS INTRANASAL, ONCE A DAY
     Route: 045
     Dates: start: 20121111, end: 20121119

REACTIONS (2)
  - Ageusia [None]
  - Anosmia [None]
